FAERS Safety Report 20553447 (Version 1)
Quarter: 2022Q1

REPORT INFORMATION
  Report Type: Spontaneous
  Country: US (occurrence: US)
  Receive Date: 20220304
  Receipt Date: 20220304
  Transmission Date: 20220423
  Serious: No
  Sender: FDA-Public Use
  Company Number: US-BAUSCH-BL-2022-005567

PATIENT
  Sex: Female

DRUGS (2)
  1. DORZOLAMIDE HYDROCHLORIDE [Suspect]
     Active Substance: DORZOLAMIDE HYDROCHLORIDE
     Indication: Product used for unknown indication
     Dosage: FIRST BOTTLE
     Route: 065
  2. DORZOLAMIDE HYDROCHLORIDE [Suspect]
     Active Substance: DORZOLAMIDE HYDROCHLORIDE
     Dosage: SECOND BOTTLE
     Route: 065

REACTIONS (4)
  - Instillation site irritation [Recovered/Resolved]
  - Rhinorrhoea [Recovered/Resolved]
  - Instillation site erythema [Recovered/Resolved]
  - Product quality issue [Unknown]
